FAERS Safety Report 7132279-X (Version None)
Quarter: 2010Q4

REPORT INFORMATION
  Report Type: 
  Country: None (occurrence: None)
  Receive Date: 20101202
  Receipt Date: 20101119
  Transmission Date: 20110411
  Serious: Yes (Other)
  Sender: FDA-Public Use
  Company Number: PHHY2010AT78926

PATIENT
  Age: 86 Year
  Sex: Female
  Weight: 56 kg

DRUGS (1)
  1. DIOVAN TRIPLE DTR+TAB [Suspect]
     Dosage: 160/10/12.5 MG
     Route: 048
     Dates: start: 20100609, end: 20100612

REACTIONS (4)
  - BLOOD PRESSURE INCREASED [None]
  - DRUG INTOLERANCE [None]
  - LIMB DISCOMFORT [None]
  - PARAESTHESIA [None]
